FAERS Safety Report 8102564-3 (Version None)
Quarter: 2012Q1

REPORT INFORMATION
  Report Type: 
  Country: None (occurrence: None)
  Receive Date: 20120201
  Receipt Date: 20120120
  Transmission Date: 20120608
  Serious: Yes (Death)
  Sender: FDA-Public Use
  Company Number: US-JNJFOC-20120110377

PATIENT
  Age: 62 Year
  Sex: Female
  Weight: 78.47 kg

DRUGS (7)
  1. ALDACTONE [Concomitant]
     Route: 065
  2. IMURAN [Suspect]
     Indication: CROHN'S DISEASE
     Route: 048
  3. PREDNISONE TAB [Concomitant]
     Route: 065
  4. LASIX [Concomitant]
     Route: 065
  5. REMICADE [Suspect]
     Indication: CROHN'S DISEASE
     Dosage: FOR 4 YEARS
     Route: 042
     Dates: start: 20060201, end: 20100601
  6. IMURAN [Suspect]
     Route: 048
     Dates: start: 20100903, end: 20101214
  7. PILOCARPINE [Concomitant]
     Route: 065

REACTIONS (2)
  - DEATH [None]
  - HEPATOSPLENIC T-CELL LYMPHOMA [None]
